FAERS Safety Report 14458041 (Version 1)
Quarter: 2018Q1

REPORT INFORMATION
  Report Type: Not Available
  Country: US (occurrence: US)
  Receive Date: 20180130
  Receipt Date: 20180130
  Transmission Date: 20180509
  Serious: Yes (Hospitalization)
  Sender: FDA-Public Use
  Company Number: US-NEUROCRINE BIOSCIENCES INC.-2018NBI00193

PATIENT
  Sex: Female

DRUGS (17)
  1. PAROXETINE. [Concomitant]
     Active Substance: PAROXETINE
  2. DOCUSATE [Concomitant]
     Active Substance: DOCUSATE
  3. MIRALAX [Concomitant]
     Active Substance: POLYETHYLENE GLYCOL 3350
  4. RISPERDAL [Concomitant]
     Active Substance: RISPERIDONE
  5. OYSTER SHELL CALCIUM [Concomitant]
     Active Substance: CALCIUM
  6. PEPCID AC [Concomitant]
     Active Substance: FAMOTIDINE
  7. SENNA [Concomitant]
     Active Substance: SENNA LEAF\SENNOSIDES\SENNOSIDES A AND B
  8. ASPIRIN. [Concomitant]
     Active Substance: ASPIRIN
  9. TUSSIN COUGH [Concomitant]
     Active Substance: DEXTROMETHORPHAN HYDROBROMIDE
  10. ALBUTEROL. [Concomitant]
     Active Substance: ALBUTEROL
  11. ATROPINE. [Concomitant]
     Active Substance: ATROPINE
  12. ENSURE [Concomitant]
     Active Substance: AMINO ACIDS\DEXTROSE\ELECTROLYTES NOS\SOYBEAN OIL\VITAMINS
  13. INGREZZA [Suspect]
     Active Substance: VALBENAZINE
     Indication: PRODUCT USED FOR UNKNOWN INDICATION
     Route: 048
     Dates: start: 20171024
  14. CLOPIDOGREL [Concomitant]
     Active Substance: CLOPIDOGREL BISULFATE
  15. VITAMIN D3 [Concomitant]
     Active Substance: CHOLECALCIFEROL
  16. PULMICORT TURBUHALER [Concomitant]
     Active Substance: BUDESONIDE
  17. PRILOSEC [Concomitant]
     Active Substance: OMEPRAZOLE MAGNESIUM

REACTIONS (1)
  - Hospitalisation [Unknown]
